FAERS Safety Report 8910660 (Version 1)
Quarter: 2012Q4

REPORT INFORMATION
  Report Type: Spontaneous
  Country: DE (occurrence: None)
  Receive Date: 20121108
  Receipt Date: 20121108
  Transmission Date: 20130627
  Serious: Yes (Other)
  Sender: FDA-Public Use
  Company Number: GER/GER/12/0026502

PATIENT
  Age: 45 Year
  Sex: Male
  Weight: 71 kg

DRUGS (5)
  1. SIMVASTATIN (SIMVASTATIN) [Suspect]
     Indication: CORONARY ARTERY DISEASE
     Route: 048
     Dates: start: 20120329, end: 20120430
  2. BRILIQUE [Suspect]
     Route: 048
     Dates: start: 20120329
  3. ASS 100 (ACETYLSALICYLIC ACID) [Concomitant]
  4. METOPROLOL [Concomitant]
  5. RAMIPRIL [Concomitant]

REACTIONS (6)
  - Drug level increased [None]
  - Transaminases increased [None]
  - Pain in extremity [None]
  - Blood creatine phosphokinase increased [None]
  - Aspartate aminotransferase increased [None]
  - Alanine aminotransferase increased [None]
